FAERS Safety Report 5326042-X (Version None)
Quarter: 2007Q2

REPORT INFORMATION
  Report Type: 
  Country: None (occurrence: None)
  Receive Date: 20070516
  Receipt Date: 20070504
  Transmission Date: 20071010
  Serious: Yes (Other)
  Sender: FDA-Public Use
  Company Number: US-JNJFOC-20070502000

PATIENT
  Sex: Male

DRUGS (6)
  1. RAZADYNE [Suspect]
     Indication: DRUG USE FOR UNKNOWN INDICATION
  2. ROZEREM [Suspect]
     Indication: DRUG USE FOR UNKNOWN INDICATION
  3. SEROQUEL [Concomitant]
  4. DEPAKOTE [Concomitant]
  5. ZYPREXA [Concomitant]
  6. LAMICTAL [Concomitant]

REACTIONS (2)
  - MEDICATION ERROR [None]
  - NO ADVERSE DRUG EFFECT [None]
